FAERS Safety Report 8542867-1 (Version None)
Quarter: 2012Q3

REPORT INFORMATION
  Report Type: 
  Country: None (occurrence: None)
  Receive Date: 20120727
  Receipt Date: 20120723
  Transmission Date: 20120928
  Serious: Yes (Death)
  Sender: FDA-Public Use
  Company Number: US-009507513-1207USA009618

PATIENT

DRUGS (1)
  1. JANUVIA [Suspect]
     Dosage: 1 TAB, QD
     Route: 048

REACTIONS (9)
  - SMALL INTESTINE CARCINOMA [None]
  - RENAL FAILURE ACUTE [None]
  - DECREASED APPETITE [None]
  - DIARRHOEA [None]
  - CARCINOEMBRYONIC ANTIGEN INCREASED [None]
  - PANCREATIC CARCINOMA [None]
  - JAUNDICE [None]
  - GASTROINTESTINAL HAEMORRHAGE [None]
  - PANCREATITIS CHRONIC [None]
